FAERS Safety Report 16658361 (Version 1)
Quarter: 2019Q3

REPORT INFORMATION
  Report Type: Spontaneous
  Country: US (occurrence: US)
  Receive Date: 20190801
  Receipt Date: 20190801
  Transmission Date: 20191004
  Serious: No
  Sender: FDA-Public Use
  Company Number: US-TEVA-2019-US-1084545

PATIENT
  Sex: Male

DRUGS (1)
  1. ACETAMINOPHEN/CODEINE TABLET [Suspect]
     Active Substance: ACETAMINOPHEN\CODEINE PHOSPHATE
     Indication: MIGRAINE
     Dosage: DOSE STRENGTH:  300 MG/15 MG
     Route: 065
     Dates: start: 1992

REACTIONS (2)
  - Drug ineffective [Unknown]
  - Dizziness [Unknown]
